FAERS Safety Report 8003635-2 (Version None)
Quarter: 2011Q4

REPORT INFORMATION
  Report Type: 
  Country: None (occurrence: None)
  Receive Date: 20111222
  Receipt Date: 20111213
  Transmission Date: 20120403
  Serious: Yes (Other)
  Sender: FDA-Public Use
  Company Number: US-ACTELION-A-US2011-57531

PATIENT

DRUGS (3)
  1. TRACLEER [Suspect]
     Indication: PULMONARY ARTERIAL HYPERTENSION
     Dosage: UNK
     Route: 048
     Dates: start: 20070316
  2. REVATIO [Concomitant]
  3. CALCIUM CHANNEL BLOCKERS [Concomitant]

REACTIONS (7)
  - OEDEMA PERIPHERAL [None]
  - SYNCOPE [None]
  - FATIGUE [None]
  - DYSPNOEA [None]
  - OXYGEN SATURATION ABNORMAL [None]
  - MALAISE [None]
  - PULMONARY CONGESTION [None]
